FAERS Safety Report 5901634-5 (Version None)
Quarter: 2008Q3

REPORT INFORMATION
  Report Type: 
  Country: None (occurrence: None)
  Receive Date: 20080929
  Receipt Date: 20080919
  Transmission Date: 20090109
  Serious: Yes (Other)
  Sender: FDA-Public Use
  Company Number: MX-MERCK-0809MEX00022

PATIENT
  Age: 55 Year
  Sex: Female
  Weight: 72 kg

DRUGS (5)
  1. JANUVIA [Suspect]
     Indication: DIABETES MELLITUS
     Route: 048
     Dates: start: 20071101, end: 20071201
  2. JANUVIA [Suspect]
     Route: 048
     Dates: start: 20071201
  3. LEVOTHYROXINE SODIUM [Concomitant]
     Indication: HYPOTHYROIDISM
     Route: 048
     Dates: start: 20000101
  4. ASPIRIN [Concomitant]
     Indication: PROPHYLAXIS
     Route: 048
     Dates: start: 20060101
  5. VITAMINS (UNSPECIFIED) [Concomitant]
     Indication: MEDICAL DIET
     Route: 048
     Dates: start: 20060101

REACTIONS (2)
  - ADENOCARCINOMA PANCREAS [None]
  - WRONG TECHNIQUE IN DRUG USAGE PROCESS [None]
